FAERS Safety Report 9301846 (Version 1)
Quarter: 2013Q2

REPORT INFORMATION
  Report Type: Spontaneous
  Country: US (occurrence: US)
  Receive Date: 20130521
  Receipt Date: 20130521
  Transmission Date: 20140414
  Serious: No
  Sender: FDA-Public Use
  Company Number: US-TEVA-361862USA

PATIENT
  Sex: Female

DRUGS (2)
  1. FENTORA [Suspect]
     Indication: NEUROPATHY PERIPHERAL
     Dosage: 2000 MICROGRAM DAILY;
     Route: 002
     Dates: start: 2004
  2. MORPHINE [Concomitant]
     Indication: NEUROPATHY PERIPHERAL

REACTIONS (3)
  - Incorrect dose administered [Unknown]
  - Pregnancy [Unknown]
  - Vomiting [Unknown]
